FAERS Safety Report 21109704 (Version 4)
Quarter: 2022Q4

REPORT INFORMATION
  Report Type: Spontaneous
  Country: US (occurrence: US)
  Receive Date: 20220721
  Receipt Date: 20221006
  Transmission Date: 20230113
  Serious: Yes (Hospitalization)
  Sender: FDA-Public Use
  Company Number: US-BRISTOL-MYERS SQUIBB COMPANY-2022-073699

PATIENT
  Age: 67 Year
  Sex: Female

DRUGS (3)
  1. REVLIMID [Suspect]
     Active Substance: LENALIDOMIDE
     Indication: Plasma cell myeloma
     Dosage: TAKE 1 CAPSULE BY MOUTH WHOLE AT SAME TIME DAILY, W/ OR W/O FOOD, FOR 14 DAYS THEN 7 DAYS OFF DO NOT
     Route: 048
  2. REVLIMID [Suspect]
     Active Substance: LENALIDOMIDE
     Dosage: TAKE 1 CAPSULE BY MOUTH WHOLE AT SAME TIME DAILY, W/ OR W/O FOOD, FOR 21 DAYS THEN 7 DAYS OFF DO NOT
     Route: 048
     Dates: end: 20220801
  3. REVLIMID [Suspect]
     Active Substance: LENALIDOMIDE
     Dosage: TAKE 1 CAPSULE BY MOUTH DAILY WHOLE W/ WATER W/ OR W/O FOOD AT THE SAME TIME FOR 21 DAYS ON 7 DAYS O
     Route: 048

REACTIONS (3)
  - White blood cell count decreased [Unknown]
  - Pyrexia [Unknown]
  - Off label use [Unknown]
